FAERS Safety Report 24668390 (Version 3)
Quarter: 2024Q4

REPORT INFORMATION
  Report Type: Report from Study
  Country: CA (occurrence: CA)
  Receive Date: 20241127
  Receipt Date: 20241217
  Transmission Date: 20250115
  Serious: Yes (Other)
  Sender: SAMSUNG BIOEPIS
  Company Number: CA-SAMSUNG BIOEPIS-SB-2024-34325

PATIENT
  Age: 46 Year
  Sex: Female
  Weight: 85 kg

DRUGS (4)
  1. RENFLEXIS [Suspect]
     Active Substance: INFLIXIMAB-ABDA
     Indication: Colitis ulcerative
     Dosage: WK 0,2,6 THEN EVERY 8 WEEKS;
     Route: 042
     Dates: start: 20241105
  2. RENFLEXIS [Suspect]
     Active Substance: INFLIXIMAB-ABDA
     Route: 042
  3. RENFLEXIS [Suspect]
     Active Substance: INFLIXIMAB-ABDA
     Dosage: 423 MG, DAY 0;
     Route: 042
     Dates: start: 20241105
  4. RENFLEXIS [Suspect]
     Active Substance: INFLIXIMAB-ABDA
     Dosage: 423 MG, DAY 0;
     Route: 042
     Dates: start: 20241105

REACTIONS (3)
  - Haematochezia [Recovered/Resolved]
  - Colitis ulcerative [Unknown]
  - Headache [Recovered/Resolved]

NARRATIVE: CASE EVENT DATE: 20241105
